FAERS Safety Report 6375201-6 (Version None)
Quarter: 2009Q3

REPORT INFORMATION
  Report Type: 
  Country: None (occurrence: None)
  Receive Date: 20090924
  Receipt Date: 20090916
  Transmission Date: 20100115
  Serious: Yes (Other)
  Sender: FDA-Public Use
  Company Number: A0808667A

PATIENT
  Sex: Female

DRUGS (3)
  1. NIQUITIN 21MG [Suspect]
     Indication: SMOKING CESSATION THERAPY
     Dosage: 21MG PER DAY
     Route: 062
     Dates: start: 20081201, end: 20090201
  2. RIVOTRIL [Concomitant]
     Dosage: 2MG PER DAY
     Route: 048
  3. METFORMIN [Concomitant]
     Dosage: 850MG TWICE PER DAY
     Route: 048

REACTIONS (5)
  - ABNORMAL DREAMS [None]
  - DRUG INEFFECTIVE [None]
  - HEADACHE [None]
  - INSOMNIA [None]
  - LUNG NEOPLASM [None]
